FAERS Safety Report 11745973 (Version 1)
Quarter: 2015Q4

REPORT INFORMATION
  Report Type: Spontaneous
  Country: CA (occurrence: CA)
  Receive Date: 20151117
  Receipt Date: 20151117
  Transmission Date: 20160304
  Serious: Yes (Life-Threatening)
  Sender: FDA-Public Use
  Company Number: PHHY2015CA149846

PATIENT
  Age: 23 Year
  Sex: Female
  Weight: 61 kg

DRUGS (2)
  1. RITALIN [Suspect]
     Active Substance: METHYLPHENIDATE HYDROCHLORIDE
     Indication: HYPERSOMNIA
     Dosage: 1 DF, QD
     Route: 048
  2. CIPRALEX [Concomitant]
     Active Substance: ESCITALOPRAM OXALATE
     Indication: HYPERSOMNIA
     Route: 065

REACTIONS (7)
  - Abnormal behaviour [Recovered/Resolved]
  - Compulsive shopping [Recovered/Resolved]
  - Emotional distress [Recovered/Resolved]
  - Suicidal ideation [Recovered/Resolved]
  - Bipolar disorder [Recovered/Resolved]
  - Emotional disorder [Recovered/Resolved]
  - Obsessive-compulsive disorder [Recovered/Resolved]
